FAERS Safety Report 5762521-9 (Version None)
Quarter: 2008Q2

REPORT INFORMATION
  Report Type: 
  Country: None (occurrence: None)
  Receive Date: 20080609
  Receipt Date: 20080530
  Transmission Date: 20081010
  Serious: Yes (Death)
  Sender: FDA-Public Use
  Company Number: A0731826A

PATIENT
  Age: 72 Year
  Sex: Male

DRUGS (2)
  1. SERETIDE [Suspect]
     Route: 055
     Dates: start: 20080314, end: 20080516
  2. SODIUM CHLORIDE 0.9% [Concomitant]
     Dates: start: 20000101

REACTIONS (2)
  - ASTHMA [None]
  - PNEUMONIA [None]
